FAERS Safety Report 9382327 (Version 1)
Quarter: 2013Q3

REPORT INFORMATION
  Report Type: Spontaneous
  Country: US (occurrence: US)
  Receive Date: 20130703
  Receipt Date: 20130703
  Transmission Date: 20140515
  Serious: Yes (Other)
  Sender: FDA-Public Use
  Company Number: US-PFIZER INC-2013195497

PATIENT
  Age: 91 Year
  Sex: Male
  Weight: 90.7 kg

DRUGS (1)
  1. VIAGRA [Suspect]
     Indication: MICROPENIS
     Dosage: UNK
     Dates: start: 201306

REACTIONS (3)
  - Testicular haemorrhage [Unknown]
  - Testicular disorder [Unknown]
  - Testicular pain [Unknown]
